FAERS Safety Report 7588831-0 (Version None)
Quarter: 2011Q3

REPORT INFORMATION
  Report Type: 
  Country: None (occurrence: None)
  Receive Date: 20110705
  Receipt Date: 20110627
  Transmission Date: 20111222
  Serious: Yes (Other)
  Sender: FDA-Public Use
  Company Number: US-JNJFOC-20110609330

PATIENT
  Sex: Female
  Weight: 95.26 kg

DRUGS (1)
  1. FENTANYL-100 [Suspect]
     Indication: PRODUCT USED FOR UNKNOWN INDICATION
     Dosage: STOP DATE: JUN-2011
     Route: 062
     Dates: start: 20110610

REACTIONS (9)
  - OVERDOSE [None]
  - PAROSMIA [None]
  - CYANOSIS [None]
  - OEDEMA PERIPHERAL [None]
  - HYPERHIDROSIS [None]
  - DYSGEUSIA [None]
  - PRODUCT ADHESION ISSUE [None]
  - WRONG TECHNIQUE IN DRUG USAGE PROCESS [None]
  - CONDITION AGGRAVATED [None]
